FAERS Safety Report 18629598 (Version 2)
Quarter: 2021Q1

REPORT INFORMATION
  Report Type: Spontaneous
  Country: US (occurrence: US)
  Receive Date: 20201217
  Receipt Date: 20210208
  Transmission Date: 20210419
  Serious: No
  Sender: FDA-Public Use
  Company Number: US-PFIZER INC-2020497047

PATIENT
  Age: 47 Year
  Sex: Female

DRUGS (2)
  1. XELJANZ XR [Suspect]
     Active Substance: TOFACITINIB CITRATE
     Dosage: 11 MG, 1X/DAY
     Route: 048
     Dates: start: 20201106, end: 20201208
  2. XELJANZ XR [Suspect]
     Active Substance: TOFACITINIB CITRATE
     Indication: RHEUMATOID ARTHRITIS
     Dosage: 11 MG, 1X/DAY
     Route: 048
     Dates: start: 20201106, end: 20201209

REACTIONS (8)
  - Insomnia [Unknown]
  - Therapeutic response unexpected [Unknown]
  - Palpitations [Unknown]
  - Panic attack [Unknown]
  - Heart rate increased [Unknown]
  - Depression [Unknown]
  - Chest discomfort [Unknown]
  - Anxiety [Unknown]
